FAERS Safety Report 24330396 (Version 2)
Quarter: 2024Q3

REPORT INFORMATION
  Report Type: Report from Study
  Country: KR (occurrence: KR)
  Receive Date: 20240918
  Receipt Date: 20240927
  Transmission Date: 20241017
  Serious: Yes (Hospitalization, Other)
  Sender: TAKEDA
  Company Number: KR-TAKEDA-2024TUS092085

PATIENT
  Age: 49 Year
  Sex: Female
  Weight: 43.3 kg

DRUGS (49)
  1. VEDOLIZUMAB [Suspect]
     Active Substance: VEDOLIZUMAB
     Indication: Colitis ulcerative
     Dosage: 300 MILLIGRAM
     Route: 042
     Dates: start: 20240502
  2. DICAMAX [Concomitant]
     Dosage: UNK UNK, QD
     Route: 048
     Dates: start: 20240531
  3. Codenal [Concomitant]
     Indication: Adverse event
     Dosage: 20 MILLILITER, QD
     Route: 048
     Dates: start: 20240530
  4. TIROPRAMIDE [Concomitant]
     Active Substance: TIROPRAMIDE
     Dosage: 100 MILLIGRAM, TID
     Route: 048
     Dates: start: 20240530
  5. HERBALS [Concomitant]
     Active Substance: HERBALS
     Dosage: 30 MILLIGRAM, BID
     Route: 048
     Dates: start: 20240730
  6. Fexuclue [Concomitant]
     Dosage: 40 MILLIGRAM, QD
     Route: 048
     Dates: start: 20240730
  7. MIDAZOLAM [Concomitant]
     Active Substance: MIDAZOLAM
     Dosage: 3 MILLIGRAM
     Route: 042
     Dates: start: 20240902
  8. MIDAZOLAM [Concomitant]
     Active Substance: MIDAZOLAM
     Dosage: 5 MILLIGRAM
     Route: 042
     Dates: start: 20240910
  9. ALPIT [Concomitant]
     Dosage: 5 MILLIGRAM
     Route: 042
     Dates: start: 20240902
  10. ALPIT [Concomitant]
     Dosage: 5 MILLIGRAM
     Route: 042
     Dates: start: 20240910
  11. CAFSOL [Concomitant]
     Dosage: 500 MILLILITER, QD
     Route: 065
     Dates: start: 20240516
  12. PROPOFOL [Concomitant]
     Active Substance: PROPOFOL
     Dosage: 40 MILLIGRAM
     Route: 042
     Dates: start: 20240902
  13. PROPOFOL [Concomitant]
     Active Substance: PROPOFOL
     Dosage: 70 MILLIGRAM
     Route: 042
     Dates: start: 20240910
  14. OMAPONE PERI [Concomitant]
     Dosage: 500 MILLIGRAM
     Route: 042
     Dates: start: 20240902
  15. OMAPONE PERI [Concomitant]
     Dosage: 500 MILLILITER
     Route: 042
     Dates: start: 20240910
  16. SMOFKABIVEN PERIPHERAL [Concomitant]
     Dosage: 1488 MILLIGRAM, QD
     Route: 042
     Dates: start: 20240910
  17. HYDROCORTISONE SODIUM SUCCINATE [Concomitant]
     Active Substance: HYDROCORTISONE SODIUM SUCCINATE
     Dosage: 100 MILLIGRAM, QID
     Route: 042
     Dates: start: 20230530, end: 20230601
  18. HYDROCORTISONE SODIUM SUCCINATE [Concomitant]
     Active Substance: HYDROCORTISONE SODIUM SUCCINATE
     Dosage: 100 MILLIGRAM, TID
     Route: 042
     Dates: start: 20240910
  19. ASACOL [Concomitant]
     Active Substance: MESALAMINE
     Dosage: 400 MILLIGRAM, BID
     Route: 048
     Dates: start: 20180122
  20. PREDNISOLONE [Concomitant]
     Active Substance: PREDNISOLONE
     Dosage: UNK
     Route: 048
     Dates: start: 20180125, end: 20180215
  21. PREDNISOLONE [Concomitant]
     Active Substance: PREDNISOLONE
     Dosage: UNK
     Route: 048
     Dates: start: 20180216, end: 20180222
  22. PREDNISOLONE [Concomitant]
     Active Substance: PREDNISOLONE
     Dosage: UNK
     Route: 048
     Dates: start: 20180223, end: 20180301
  23. PREDNISOLONE [Concomitant]
     Active Substance: PREDNISOLONE
     Dosage: UNK
     Route: 048
     Dates: start: 20180302, end: 20180308
  24. PREDNISOLONE [Concomitant]
     Active Substance: PREDNISOLONE
     Dosage: UNK
     Route: 048
     Dates: start: 20180309, end: 20180315
  25. PREDNISOLONE [Concomitant]
     Active Substance: PREDNISOLONE
     Dosage: UNK
     Route: 048
     Dates: start: 20180316, end: 20180329
  26. PREDNISOLONE [Concomitant]
     Active Substance: PREDNISOLONE
     Dosage: UNK
     Route: 048
     Dates: start: 20180330, end: 20180405
  27. PREDNISOLONE [Concomitant]
     Active Substance: PREDNISOLONE
     Dosage: UNK
     Route: 048
     Dates: start: 20180406, end: 20180412
  28. PREDNISOLONE [Concomitant]
     Active Substance: PREDNISOLONE
     Dosage: UNK
     Route: 048
     Dates: start: 20180413, end: 20180419
  29. PREDNISOLONE [Concomitant]
     Active Substance: PREDNISOLONE
     Dosage: UNK
     Route: 048
     Dates: start: 20230602, end: 20230617
  30. PREDNISOLONE [Concomitant]
     Active Substance: PREDNISOLONE
     Dosage: UNK
     Route: 048
     Dates: start: 20230618, end: 20230628
  31. PREDNISOLONE [Concomitant]
     Active Substance: PREDNISOLONE
     Dosage: UNK
     Route: 048
     Dates: start: 20230625, end: 20230701
  32. PREDNISOLONE [Concomitant]
     Active Substance: PREDNISOLONE
     Dosage: UNK
     Route: 048
     Dates: start: 20230702, end: 20230708
  33. PREDNISOLONE [Concomitant]
     Active Substance: PREDNISOLONE
     Dosage: UNK
     Route: 048
     Dates: start: 20230709, end: 20230715
  34. PREDNISOLONE [Concomitant]
     Active Substance: PREDNISOLONE
     Dosage: UNK
     Route: 048
     Dates: start: 20230716, end: 20230722
  35. PREDNISOLONE [Concomitant]
     Active Substance: PREDNISOLONE
     Dosage: UNK
     Route: 048
     Dates: start: 20240513, end: 20240619
  36. PREDNISOLONE [Concomitant]
     Active Substance: PREDNISOLONE
     Dosage: 40 MILLIGRAM, QD
     Route: 048
     Dates: start: 20240912, end: 20240919
  37. PREDNISOLONE [Concomitant]
     Active Substance: PREDNISOLONE
     Dosage: 35 MILLIGRAM, QD
     Route: 048
     Dates: start: 20240919
  38. AZATHIOPRINE [Concomitant]
     Active Substance: AZATHIOPRINE
     Dosage: 50 MILLIGRAM, BID
     Route: 048
     Dates: start: 20180202, end: 20180406
  39. AZATHIOPRINE [Concomitant]
     Active Substance: AZATHIOPRINE
     Dosage: 50 MILLIGRAM
     Route: 048
     Dates: start: 20180508, end: 20180518
  40. AZATHIOPRINE [Concomitant]
     Active Substance: AZATHIOPRINE
     Dosage: 50 MILLIGRAM
     Route: 048
     Dates: start: 20230602, end: 20230602
  41. AZATHIOPRINE [Concomitant]
     Active Substance: AZATHIOPRINE
     Dosage: 50 MILLIGRAM
     Route: 048
     Dates: start: 20230603, end: 20230603
  42. AZATHIOPRINE [Concomitant]
     Active Substance: AZATHIOPRINE
     Dosage: 50 MILLIGRAM
     Route: 048
     Dates: start: 20230604
  43. PENTASA [Concomitant]
     Active Substance: MESALAMINE
     Dosage: 1000 MILLIGRAM, QD
     Route: 054
     Dates: start: 20210518, end: 20211025
  44. PENTASA [Concomitant]
     Active Substance: MESALAMINE
     Dosage: 1000 MILLIGRAM, QD
     Route: 054
     Dates: start: 20240312, end: 20240606
  45. PENTASA [Concomitant]
     Active Substance: MESALAMINE
     Dosage: 1000 MILLIGRAM, QD
     Route: 054
     Dates: start: 20240630
  46. MESALAMINE [Concomitant]
     Active Substance: MESALAMINE
     Dosage: 1200 MILLIGRAM, QD
     Route: 048
     Dates: start: 20220811
  47. Jr hydrocortisone [Concomitant]
     Dosage: 10 MILLIGRAM, TID
     Route: 048
     Dates: start: 20230602
  48. LOPERAMIDE HYDROCHLORIDE [Concomitant]
     Active Substance: LOPERAMIDE HYDROCHLORIDE
     Dosage: UNK UNK, BID
     Route: 048
     Dates: start: 20240516
  49. RINVOQ [Concomitant]
     Active Substance: UPADACITINIB
     Dosage: UNK UNK, QD
     Route: 048
     Dates: start: 20240911

REACTIONS (1)
  - Colitis ulcerative [Recovered/Resolved]

NARRATIVE: CASE EVENT DATE: 20240910
